FAERS Safety Report 23149880 (Version 1)
Quarter: 2023Q4

REPORT INFORMATION
  Report Type: Spontaneous
  Country: US (occurrence: US)
  Receive Date: 20231106
  Receipt Date: 20231106
  Transmission Date: 20240110
  Serious: Yes (Death, Hospitalization, Other)
  Sender: FDA-Public Use
  Company Number: US-BRISTOL-MYERS SQUIBB COMPANY-2023-157265

PATIENT
  Age: 74 Year
  Sex: Male
  Weight: 125.65 kg

DRUGS (1)
  1. LENALIDOMIDE [Suspect]
     Active Substance: LENALIDOMIDE
     Indication: Plasma cell myeloma
     Dosage: DOSE : 1 CAPSULE;     FREQ : DAILY ON DAYS 1-21 OF 28 DAY CYCLE BY MOUTH. IF DOSE FALLS ON THE DAY O
     Route: 048
     Dates: start: 202306, end: 20231019

REACTIONS (1)
  - Death [Fatal]

NARRATIVE: CASE EVENT DATE: 20231019
